FAERS Safety Report 11324424 (Version 2)
Quarter: 2015Q3

REPORT INFORMATION
  Report Type: Spontaneous
  Country: US (occurrence: US)
  Receive Date: 20150730
  Receipt Date: 20150730
  Transmission Date: 20151125
  Serious: No
  Sender: FDA-Public Use
  Company Number: US-BAYER-2015-375701

PATIENT
  Sex: Female

DRUGS (1)
  1. BILTRICIDE [Suspect]
     Active Substance: PRAZIQUANTEL
     Dosage: UNK

REACTIONS (7)
  - Pain [None]
  - Malaise [None]
  - Headache [None]
  - Asthenia [None]
  - Oropharyngeal pain [None]
  - Product quality issue [None]
  - Dizziness [None]
